FAERS Safety Report 8565963 (Version 7)
Quarter: 2013Q3

REPORT INFORMATION
  Report Type: Spontaneous
  Country: US (occurrence: US)
  Receive Date: 20120516
  Receipt Date: 20130930
  Transmission Date: 20140515
  Serious: Yes (Death)
  Sender: FDA-Public Use
  Company Number: US-ELI_LILLY_AND_COMPANY-US201205002245

PATIENT
  Age: 24 Year
  Sex: Male

DRUGS (6)
  1. STRATTERA [Suspect]
     Indication: ATTENTION DEFICIT/HYPERACTIVITY DISORDER
     Dosage: 25 MG, UNKNOWN
     Dates: start: 20111202
  2. STRATTERA [Suspect]
     Dosage: 40 MG, UNKNOWN
  3. STRATTERA [Suspect]
     Dosage: 60 MG, UNKNOWN
  4. STRATTERA [Suspect]
     Dosage: 80 MG, QD
     Dates: start: 20120201
  5. ZYPREXA [Suspect]
     Dosage: 20 MG, QD
  6. KLONOPIN [Concomitant]
     Indication: ANXIETY
     Dosage: UNK, PRN

REACTIONS (13)
  - Completed suicide [Fatal]
  - Anxiety [Not Recovered/Not Resolved]
  - Insomnia [Not Recovered/Not Resolved]
  - Drug effect incomplete [Not Recovered/Not Resolved]
  - Abnormal behaviour [Not Recovered/Not Resolved]
  - Disinhibition [Not Recovered/Not Resolved]
  - Sedation [Recovered/Resolved]
  - Confusional state [Not Recovered/Not Resolved]
  - Social phobia [Not Recovered/Not Resolved]
  - Frustration [Not Recovered/Not Resolved]
  - Anger [Not Recovered/Not Resolved]
  - Blunted affect [Not Recovered/Not Resolved]
  - Bradyphrenia [Not Recovered/Not Resolved]
